FAERS Safety Report 16539844 (Version 6)
Quarter: 2019Q3

REPORT INFORMATION
  Report Type: Spontaneous
  Country: US (occurrence: US)
  Receive Date: 20190708
  Receipt Date: 20190820
  Transmission Date: 20191004
  Serious: Yes (Hospitalization, Other)
  Sender: FDA-Public Use
  Company Number: US-HORIZON-ACT-0199-2019

PATIENT
  Age: 4 Year
  Sex: Male

DRUGS (3)
  1. SPORANOX [Concomitant]
     Active Substance: ITRACONAZOLE
  2. ACTIMMUNE [Suspect]
     Active Substance: INTERFERON GAMMA-1B
     Indication: CHRONIC GRANULOMATOUS DISEASE
     Dosage: 0.18 ML THREE TIMES A WEEK
  3. TRIMETHOPRIM. [Concomitant]
     Active Substance: TRIMETHOPRIM

REACTIONS (7)
  - Condition aggravated [Unknown]
  - Liver abscess [Recovering/Resolving]
  - Staphylococcus test positive [Unknown]
  - Cardiac murmur functional [Unknown]
  - Product dose omission [Unknown]
  - Pyrexia [Recovered/Resolved]
  - Abscess drainage [Recovering/Resolving]

NARRATIVE: CASE EVENT DATE: 20190702
